FAERS Safety Report 6250956-X (Version None)
Quarter: 2009Q2

REPORT INFORMATION
  Report Type: 
  Country: None (occurrence: None)
  Receive Date: 20090630
  Receipt Date: 20090218
  Transmission Date: 20091009
  Serious: No
  Sender: FDA-Public Use
  Company Number: US-ABBOTT-09P-163-0558401-00

PATIENT
  Sex: Male
  Weight: 106.24 kg

DRUGS (13)
  1. ZEMPLAR [Suspect]
     Indication: RENAL FAILURE CHRONIC
     Route: 048
     Dates: start: 20081213, end: 20090103
  2. ZEMPLAR [Suspect]
     Dates: start: 20090218
  3. AVAPRO [Concomitant]
     Indication: HYPERTENSION
     Route: 048
  4. LABETALOL HCL [Concomitant]
     Indication: HYPERTENSION
     Route: 048
  5. CLONIDINE [Concomitant]
     Indication: HYPERTENSION
     Route: 048
  6. DOXAZOSIN MESYLATE [Concomitant]
     Indication: HYPERTENSION
     Route: 048
  7. TORSEMIDE [Concomitant]
     Indication: OEDEMA
     Route: 048
  8. ALLOPURINOL [Concomitant]
     Indication: GOUT
     Route: 048
  9. COLCHICINE [Concomitant]
     Indication: GOUT
     Route: 048
  10. TRICOR [Concomitant]
     Indication: BLOOD CHOLESTEROL INCREASED
     Route: 048
  11. ACTOS [Concomitant]
     Indication: RENAL FAILURE CHRONIC
     Route: 048
  12. ACETAMINOPHIN #3 [Concomitant]
     Indication: PAIN
     Dosage: UNKNOWN
     Route: 048
  13. ASPIRIN [Concomitant]
     Indication: CARDIOVASCULAR EVENT PROPHYLAXIS
     Route: 048

REACTIONS (1)
  - ARTHRALGIA [None]
